FAERS Safety Report 9070981 (Version 1)
Quarter: 2013Q1

REPORT INFORMATION
  Report Type: Report from Study
  Country: JP (occurrence: JP)
  Receive Date: 20130129
  Receipt Date: 20130129
  Transmission Date: 20140127
  Serious: Yes (Other)
  Sender: FDA-Public Use
  Company Number: JP-GLAXOSMITHKLINE-B0860774A

PATIENT
  Age: 19 None
  Sex: Male
  Weight: 80 kg

DRUGS (8)
  1. LAMICTAL [Suspect]
     Indication: EPILEPSY
     Dosage: 25MG PER DAY
     Route: 048
     Dates: start: 20111208, end: 20111221
  2. LAMICTAL [Suspect]
     Indication: EPILEPSY
     Dosage: 25MG PER DAY
     Route: 048
     Dates: start: 20111222, end: 20120105
  3. TEGRETOL [Concomitant]
     Indication: EPILEPSY
     Dosage: 450MG TWICE PER DAY
     Route: 048
     Dates: start: 20050517
  4. EXCEGRAN [Concomitant]
     Indication: EPILEPSY
     Dosage: 120MG TWICE PER DAY
     Route: 048
     Dates: start: 20070502
  5. MYSTAN [Concomitant]
     Indication: EPILEPSY
     Route: 048
     Dates: start: 20081017
  6. SELENICA-R [Concomitant]
     Indication: EPILEPSY
     Route: 048
     Dates: start: 20110112
  7. HEAVY MAGNESIUM OXIDE [Concomitant]
     Route: 048
  8. ENTERONON-R [Concomitant]
     Route: 048

REACTIONS (3)
  - Epilepsy [Unknown]
  - Mucosal inflammation [Recovered/Resolved]
  - Cheilitis [Recovered/Resolved]
